FAERS Safety Report 13837974 (Version 1)
Quarter: 2017Q3

REPORT INFORMATION
  Report Type: Report from Study
  Country: US (occurrence: US)
  Receive Date: 20170807
  Receipt Date: 20170807
  Transmission Date: 20171127
  Serious: No
  Sender: FDA-Public Use
  Company Number: US-AMGEN-USASL2017115468

PATIENT
  Sex: Female

DRUGS (1)
  1. ENBREL [Suspect]
     Active Substance: ETANERCEPT
     Indication: PSORIASIS
     Dosage: UNK
     Route: 065
     Dates: start: 20170425

REACTIONS (3)
  - Hyperhidrosis [Unknown]
  - Feeling abnormal [Unknown]
  - Chills [Unknown]

NARRATIVE: CASE EVENT DATE: 201706
